FAERS Safety Report 5130733-3 (Version None)
Quarter: 2006Q4

REPORT INFORMATION
  Report Type: 
  Country: None (occurrence: None)
  Receive Date: 20061018
  Receipt Date: 20061018
  Transmission Date: 20070319
  Serious: Yes (Other)
  Sender: FDA-Public Use
  Company Number: None

PATIENT
  Sex: Male
  Weight: 63.5036 kg

DRUGS (3)
  1. MEMANTINE HCL [Suspect]
     Indication: DYSKINESIA
     Dosage: BID BY PEG
     Route: 050
     Dates: start: 20060216, end: 20060602
  2. MEMANTINE HCL [Suspect]
     Indication: DYSTONIA
     Dosage: BID BY PEG
     Route: 050
     Dates: start: 20060216, end: 20060602
  3. AMANTADINE HCL [Suspect]
     Indication: MENTAL DISORDER DUE TO A GENERAL MEDICAL CONDITION
     Dosage: TID BY PEG
     Route: 050

REACTIONS (6)
  - CONDITION AGGRAVATED [None]
  - POST CONCUSSION SYNDROME [None]
  - RASH ERYTHEMATOUS [None]
  - RASH PAPULAR [None]
  - RASH PUSTULAR [None]
  - STEVENS-JOHNSON SYNDROME [None]
